FAERS Safety Report 4451039-1 (Version None)
Quarter: 2004Q3

REPORT INFORMATION
  Report Type: 
  Country: None (occurrence: None)
  Receive Date: 20040913
  Receipt Date: 20040618
  Transmission Date: 20050211
  Serious: No
  Sender: FDA-Public Use
  Company Number: 2004-BP-04850BP (0)

PATIENT
  Age: 80 Year
  Sex: Male

DRUGS (7)
  1. SPIRIVA [Suspect]
     Indication: CHRONIC OBSTRUCTIVE AIRWAYS DISEASE
     Dosage: 18MCG (18 MCG, 18 MCG DAILY), IH
     Route: 055
     Dates: start: 20040617
  2. GLYBURIDE [Concomitant]
  3. ALLOPURINOL [Concomitant]
  4. HEART MEDICATIONS (CARDIAC THERAPY) [Concomitant]
  5. METFORMIN HCL [Concomitant]
  6. OXYGEN (OXYGEN) [Concomitant]
  7. ALBUTEROL W/ IPRATROPIUM (COMBIVENT) [Concomitant]

REACTIONS (2)
  - DYSPNOEA [None]
  - THERAPEUTIC RESPONSE DECREASED [None]
